FAERS Safety Report 4840297-7 (Version None)
Quarter: 2005Q4

REPORT INFORMATION
  Report Type: 
  Country: None (occurrence: None)
  Receive Date: 20051020
  Receipt Date: 20050817
  Transmission Date: 20060501
  Serious: No
  Sender: FDA-Public Use
  Company Number: 2005BH001165

PATIENT
  Age: 49 Year
  Sex: Male
  Weight: 89.3586 kg

DRUGS (12)
  1. EXTRANEAL [Suspect]
     Indication: HAEMODIALYSIS
     Dosage: 2 L; EVERY DAY; IP
     Route: 033
     Dates: start: 20050801, end: 20050815
  2. ARANESP [Concomitant]
  3. CALCIUM CARBONATE [Concomitant]
  4. AMIODARONE [Concomitant]
  5. ASPIRIN [Concomitant]
  6. COLACE [Concomitant]
  7. LISINOPRIL [Concomitant]
  8. ESOMEPRAZOLE [Concomitant]
  9. TRAZODONE HCL [Concomitant]
  10. ZEMPLAR [Concomitant]
  11. COREG [Concomitant]
  12. RENAPHRO [Concomitant]

REACTIONS (1)
  - ARTHRALGIA [None]
